FAERS Safety Report 8127355 (Version 3)
Quarter: 2013Q4

REPORT INFORMATION
  Report Type: Spontaneous
  Country: US (occurrence: US)
  Receive Date: 20110908
  Receipt Date: 20131129
  Transmission Date: 20140711
  Serious: Yes (Hospitalization)
  Sender: FDA-Public Use
  Company Number: US-ASTRAZENECA-2011SE52015

PATIENT
  Age: 58 Year
  Sex: Male
  Weight: 83.9 kg

DRUGS (18)
  1. SEROQUEL XR [Suspect]
     Indication: BIPOLAR DISORDER
     Route: 048
     Dates: start: 2008
  2. SEROQUEL XR [Suspect]
     Indication: BIPOLAR DISORDER
     Route: 048
  3. SEROQUEL XR [Suspect]
     Indication: BIPOLAR DISORDER
     Dosage: 50 MG IN THE MORNING AND 100 MG AT NIGHT
     Route: 048
  4. DEPAKOTE [Suspect]
     Dosage: 250 MG IN THE MORNING AND 500 MG AT NIGHT
     Route: 065
     Dates: start: 201009
  5. XANAX [Suspect]
     Indication: NERVOUSNESS
     Dosage: 0.5 MG TID PRN
     Route: 065
  6. ZEN-X [Concomitant]
     Indication: GASTROOESOPHAGEAL REFLUX DISEASE
     Route: 048
  7. BARBUXIXN [Concomitant]
     Indication: ANXIETY
     Route: 048
  8. ZELEXAL [Concomitant]
     Indication: DEPRESSION
     Route: 048
  9. ZELEXAL [Concomitant]
     Indication: DEPRESSION
     Route: 048
  10. LAPHARMAKRYL [Concomitant]
     Dosage: 20/12 MG DAILY
     Route: 048
  11. CATAPRES [Concomitant]
     Indication: HYPERTENSION
     Route: 048
  12. CARDIZINE [Concomitant]
     Indication: HYPERTENSION
     Route: 048
  13. CELEXIL [Concomitant]
     Indication: DEPRESSION
     Route: 048
  14. DEPO-TESTOSTERONE [Concomitant]
     Dosage: 200 MG/ML EVERY MONTH
  15. MOBIC [Concomitant]
  16. ZESTORETIC [Concomitant]
     Dosage: 20/12.5 MG TWO TIMES A DAY
  17. CARDIZEM LA [Concomitant]
  18. TRAZODONE [Concomitant]
     Dosage: AT NIGHT

REACTIONS (16)
  - Borderline personality disorder [Unknown]
  - Anxiety disorder [Unknown]
  - Diarrhoea [Unknown]
  - Abdominal discomfort [Unknown]
  - Weight decreased [Unknown]
  - Panic attack [Not Recovered/Not Resolved]
  - Hyperlipidaemia [Unknown]
  - Heart rate increased [Unknown]
  - Dyspnoea [Unknown]
  - Intentional drug misuse [Unknown]
  - Drug dose omission [Unknown]
  - Mental disorder [Recovering/Resolving]
  - Blood pressure increased [Unknown]
  - Hypertension [Unknown]
  - Depression [Unknown]
  - Hypogonadism [Unknown]
